FAERS Safety Report 8263219-8 (Version None)
Quarter: 2012Q1

REPORT INFORMATION
  Report Type: 
  Country: None (occurrence: None)
  Receive Date: 20120327
  Receipt Date: 20080818
  Transmission Date: 20120608
  Serious: Yes (Hospitalization)
  Sender: FDA-Public Use
  Company Number: PHEH2008US07180

PATIENT
  Age: 85 Year
  Sex: Male

DRUGS (1)
  1. GLEEVEC [Suspect]
     Indication: CHRONIC MYELOID LEUKAEMIA
     Dosage: 400 MG, QD, ORAL
     Route: 048
     Dates: start: 20070701, end: 20080101

REACTIONS (3)
  - PERICARDIAL EFFUSION [None]
  - OEDEMA PERIPHERAL [None]
  - PULMONARY OEDEMA [None]
